FAERS Safety Report 18685538 (Version 1)
Quarter: 2020Q4

REPORT INFORMATION
  Report Type: Spontaneous
  Country: JP (occurrence: JP)
  Receive Date: 20201231
  Receipt Date: 20201231
  Transmission Date: 20210114
  Serious: Yes (Other)
  Sender: FDA-Public Use
  Company Number: JP-ASTRAZENECA-2020SF72527

PATIENT

DRUGS (3)
  1. ETOPOSIDE. [Suspect]
     Active Substance: ETOPOSIDE
     Indication: SMALL CELL LUNG CANCER EXTENSIVE STAGE
     Dosage: DOSE UNKNOWN, DAY 1, 2, 3 FOR EACH CYCLE
     Route: 065
     Dates: start: 20201207
  2. IMFINZI [Suspect]
     Active Substance: DURVALUMAB
     Indication: SMALL CELL LUNG CANCER EXTENSIVE STAGE
     Route: 042
     Dates: start: 20201207
  3. CARBOPLATIN. [Suspect]
     Active Substance: CARBOPLATIN
     Indication: SMALL CELL LUNG CANCER EXTENSIVE STAGE
     Dosage: DOSE UNKNOWN,EVERY THREE WEEKS
     Route: 065
     Dates: start: 20201207

REACTIONS (1)
  - Neutrophil count decreased [Unknown]
